FAERS Safety Report 9281117 (Version 1)
Quarter: 2013Q2

REPORT INFORMATION
  Report Type: Spontaneous
  Country: US (occurrence: None)
  Receive Date: 20130508
  Receipt Date: 20130508
  Transmission Date: 20140414
  Serious: Yes (Hospitalization)
  Sender: FDA-Public Use
  Company Number: None

PATIENT
  Age: 65 Year
  Sex: Male
  Weight: 60.5 kg

DRUGS (2)
  1. PACLITAXEL [Suspect]
     Route: 042
     Dates: start: 20121009, end: 20121009
  2. CARBOPLATIN [Suspect]
     Route: 042
     Dates: start: 20121009, end: 20121009

REACTIONS (2)
  - Leukopenia [None]
  - Febrile neutropenia [None]
